FAERS Safety Report 12114766 (Version 1)
Quarter: 2016Q1

REPORT INFORMATION
  Report Type: Spontaneous
  Country: FR (occurrence: FR)
  Receive Date: 20160225
  Receipt Date: 20160225
  Transmission Date: 20160526
  Serious: Yes (Other)
  Sender: FDA-Public Use
  Company Number: FR-BAXTER-2016BAX008185

PATIENT
  Sex: Male

DRUGS (10)
  1. CARBOPLATIN. [Suspect]
     Active Substance: CARBOPLATIN
     Indication: SARCOMA
     Dosage: 6 COURSES
     Route: 042
     Dates: start: 1996
  2. DOXORUBICIN HYDROCHLORIDE. [Suspect]
     Active Substance: DOXORUBICIN HYDROCHLORIDE
     Indication: GASTROINTESTINAL CARCINOMA
  3. ENDOXAN 1000 MG, POUDRE POUR SOLUTION INJECTABLE [Suspect]
     Active Substance: CYCLOPHOSPHAMIDE
     Indication: GASTROINTESTINAL CARCINOMA
  4. ALKERAN [Suspect]
     Active Substance: MELPHALAN
     Indication: GASTROINTESTINAL CARCINOMA
  5. ALKERAN [Suspect]
     Active Substance: MELPHALAN
     Indication: SARCOMA
     Dosage: 6 COURSES
     Route: 042
     Dates: start: 1996
  6. DOXORUBICIN HYDROCHLORIDE. [Suspect]
     Active Substance: DOXORUBICIN HYDROCHLORIDE
     Indication: SARCOMA
     Dosage: 6 COURSES
     Route: 042
     Dates: start: 1996
  7. VEPESIDE [Suspect]
     Active Substance: ETOPOSIDE
     Indication: GASTROINTESTINAL CARCINOMA
  8. ENDOXAN 1000 MG, POUDRE POUR SOLUTION INJECTABLE [Suspect]
     Active Substance: CYCLOPHOSPHAMIDE
     Indication: SARCOMA
     Dosage: 6 COURSES
     Route: 042
     Dates: start: 1996
  9. CARBOPLATIN. [Suspect]
     Active Substance: CARBOPLATIN
     Indication: GASTROINTESTINAL CARCINOMA
  10. VEPESIDE [Suspect]
     Active Substance: ETOPOSIDE
     Indication: SARCOMA
     Dosage: 6 COURSES
     Route: 065
     Dates: start: 1996

REACTIONS (3)
  - End stage renal disease [Unknown]
  - Fanconi syndrome [Recovered/Resolved with Sequelae]
  - Renal tubular disorder [Unknown]

NARRATIVE: CASE EVENT DATE: 1996
